FAERS Safety Report 6045220-8 (Version None)
Quarter: 2009Q1

REPORT INFORMATION
  Report Type: 
  Country: None (occurrence: None)
  Receive Date: 20090121
  Receipt Date: 20090108
  Transmission Date: 20090719
  Serious: Yes (Other)
  Sender: FDA-Public Use
  Company Number: US-ROCHE-607042

PATIENT
  Age: 54 Year
  Sex: Female

DRUGS (3)
  1. INTERFERON ALFA [Suspect]
     Indication: HEPATITIS C
     Route: 065
     Dates: start: 20000101
  2. INTERFERON ALFA [Suspect]
     Route: 065
     Dates: start: 20010101, end: 20010101
  3. RIBAVIRIN [Suspect]
     Indication: HEPATITIS C
     Route: 065

REACTIONS (8)
  - HEPATITIS C [None]
  - INFLUENZA LIKE ILLNESS [None]
  - INJURY [None]
  - MEDICATION ERROR [None]
  - NO ADVERSE EVENT [None]
  - PAIN [None]
  - ROAD TRAFFIC ACCIDENT [None]
  - TREATMENT NONCOMPLIANCE [None]
